FAERS Safety Report 12183525 (Version 3)
Quarter: 2016Q3

REPORT INFORMATION
  Report Type: Spontaneous
  Country: US (occurrence: US)
  Receive Date: 20160316
  Receipt Date: 20160824
  Transmission Date: 20161109
  Serious: No
  Sender: FDA-Public Use
  Company Number: US-009507513-1603USA001755

PATIENT

DRUGS (4)
  1. VANCOMYCIN [Concomitant]
     Active Substance: VANCOMYCIN
     Dosage: UNKNOWN
  2. NOXAFIL [Suspect]
     Active Substance: POSACONAZOLE
     Dosage: UNK, QD (STRENGTH: 300, UNITS UNSPECIFIED)
     Route: 042
     Dates: start: 201602
  3. NOXAFIL [Suspect]
     Active Substance: POSACONAZOLE
     Indication: FEBRILE NEUTROPENIA
     Dosage: UNK, QD (STRENGTH: 300, UNITS UNSPECIFIED)
     Route: 042
     Dates: start: 201602
  4. MEROPENEM. [Concomitant]
     Active Substance: MEROPENEM
     Dosage: UNKNOWN

REACTIONS (3)
  - Product deposit [Unknown]
  - Product quality issue [Unknown]
  - Wrong technique in product usage process [Unknown]

NARRATIVE: CASE EVENT DATE: 201602
